FAERS Safety Report 9356726 (Version 4)
Quarter: 2013Q3

REPORT INFORMATION
  Report Type: Report from Study
  Country: CA (occurrence: CA)
  Receive Date: 20130619
  Receipt Date: 20130822
  Transmission Date: 20140515
  Serious: Yes (Hospitalization, Other)
  Sender: FDA-Public Use
  Company Number: PHHY2013CA062419

PATIENT
  Age: 69 Year
  Sex: Male

DRUGS (6)
  1. EXJADE [Suspect]
     Indication: MYELODYSPLASTIC SYNDROME
     Dosage: 3000 MG, QD
     Route: 048
     Dates: start: 20130507, end: 20130629
  2. EXJADE [Suspect]
     Dosage: 3000 MG, QD
     Route: 048
     Dates: start: 20130714
  3. ANTIBIOTICS [Concomitant]
     Dosage: UNK UKN, UNK
  4. VALACIKLOVIR [Concomitant]
     Dosage: UNK UKN, UNK
  5. MULTIVITAMINS [Concomitant]
  6. ANTIVIRALS [Concomitant]

REACTIONS (10)
  - Immune system disorder [Unknown]
  - Neutrophil count decreased [Unknown]
  - Pyrexia [Unknown]
  - Device related infection [Unknown]
  - Arthralgia [Recovered/Resolved]
  - Chromaturia [Unknown]
  - Oropharyngeal discomfort [Unknown]
  - Dry mouth [Unknown]
  - Frequent bowel movements [Unknown]
  - Abdominal distension [Unknown]
